FAERS Safety Report 7314035-2 (Version None)
Quarter: 2011Q1

REPORT INFORMATION
  Report Type: 
  Country: None (occurrence: None)
  Receive Date: 20110216
  Receipt Date: 20110216
  Transmission Date: 20110831
  Serious: Yes (Hospitalization)
  Sender: FDA-Public Use
  Company Number: None

PATIENT
  Age: 63 Year
  Sex: Male
  Weight: 47.1741 kg

DRUGS (1)
  1. MANNITOL [Suspect]
     Indication: ADJUVANT THERAPY
     Dosage: 2500 ML ONCE IV
     Route: 042
     Dates: start: 20101117

REACTIONS (1)
  - HYPOTENSION [None]
